FAERS Safety Report 24054879 (Version 1)
Quarter: 2024Q3

REPORT INFORMATION
  Report Type: Spontaneous
  Country: US (occurrence: US)
  Receive Date: 20240705
  Receipt Date: 20240705
  Transmission Date: 20241016
  Serious: No
  Sender: TEVA
  Company Number: US-TEVA-VS-3214276

PATIENT
  Age: 44 Year
  Sex: Female

DRUGS (14)
  1. AJOVY [Suspect]
     Active Substance: FREMANEZUMAB-VFRM
     Indication: Migraine
     Dosage: 225/1.5 MG/ML
     Route: 065
     Dates: start: 20240607
  2. AJOVY [Suspect]
     Active Substance: FREMANEZUMAB-VFRM
  3. LISINOPRIL [Concomitant]
     Active Substance: LISINOPRIL
  4. RIZATRIPTAN [Concomitant]
     Active Substance: RIZATRIPTAN
  5. GABAPENTIN [Concomitant]
     Active Substance: GABAPENTIN
  6. LYRICA [Concomitant]
     Active Substance: PREGABALIN
  7. PROZAC [Concomitant]
     Active Substance: FLUOXETINE HYDROCHLORIDE
  8. Centrum Silver without zinc, [Concomitant]
  9. Vitamin B-12, [Concomitant]
  10. FISH OIL [Concomitant]
     Active Substance: FISH OIL
  11. DIETARY SUPPLEMENT [Concomitant]
     Active Substance: DIETARY SUPPLEMENT
  12. ROSUVASTATIN [Concomitant]
     Active Substance: ROSUVASTATIN
  13. HYDROXYZINE [Concomitant]
     Active Substance: HYDROXYZINE HYDROCHLORIDE
  14. COPPER [Concomitant]
     Active Substance: COPPER

REACTIONS (10)
  - Hot flush [Recovering/Resolving]
  - Vomiting [Recovering/Resolving]
  - Muscle twitching [Unknown]
  - Blood pressure decreased [Recovered/Resolved]
  - Heart rate increased [Recovered/Resolved]
  - Feeling abnormal [Recovering/Resolving]
  - Pruritus [Recovering/Resolving]
  - Rash [Recovering/Resolving]
  - Urticaria [Unknown]
  - Hyperhidrosis [Unknown]

NARRATIVE: CASE EVENT DATE: 20240601
